FAERS Safety Report 5917047-6 (Version None)
Quarter: 2008Q4

REPORT INFORMATION
  Report Type: 
  Country: None (occurrence: None)
  Receive Date: 20081009
  Receipt Date: 20081009
  Transmission Date: 20090506
  Serious: Yes (Other)
  Sender: FDA-Public Use
  Company Number: None

PATIENT
  Age: 37 Year
  Sex: Male
  Weight: 68.9467 kg

DRUGS (1)
  1. CREST PRO HEALTH MOUTHWASH PROCTOR AND GAMBLE [Suspect]
     Indication: DENTAL DISORDER PROPHYLAXIS
     Dosage: AS SHOWN ON LABEL DAILY
     Dates: start: 20080805, end: 20081002

REACTIONS (3)
  - GINGIVAL DISCOLOURATION [None]
  - ORAL DISCOMFORT [None]
  - TOOTH DISCOLOURATION [None]
